FAERS Safety Report 16004472 (Version 1)
Quarter: 2019Q1

REPORT INFORMATION
  Report Type: Spontaneous
  Country: IT (occurrence: IT)
  Receive Date: 20190226
  Receipt Date: 20190226
  Transmission Date: 20190418
  Serious: Yes (Hospitalization)
  Sender: FDA-Public Use
  Company Number: IT-ACCORD-108542

PATIENT
  Age: 66 Year
  Sex: Female
  Weight: 64 kg

DRUGS (3)
  1. EPOETIN ALFA [Suspect]
     Active Substance: ERYTHROPOIETIN
     Indication: NEPHROGENIC ANAEMIA
     Route: 058
     Dates: start: 20121110, end: 20170712
  2. MYCOPHENOLIC ACID. [Suspect]
     Active Substance: MYCOPHENOLIC ACID
     Indication: PRODUCT USED FOR UNKNOWN INDICATION
     Dosage: DOSAGE FORM: UNSPECIFIED
     Route: 065
     Dates: start: 20170703, end: 20170719
  3. EPREX [Suspect]
     Active Substance: ERYTHROPOIETIN
     Indication: NEPHROGENIC ANAEMIA
     Dosage: ALSO RECEIVED FROM 10-NOV-2012 TO 12-JUL-2017 FOR CHRONIC RENAL FAILURE ANEMIA
     Route: 058
     Dates: start: 20121110, end: 20170712

REACTIONS (4)
  - Anaemia [Not Recovered/Not Resolved]
  - Aplasia pure red cell [Not Recovered/Not Resolved]
  - Anti-erythropoietin antibody negative [Recovered/Resolved]
  - Pancytopenia [Unknown]

NARRATIVE: CASE EVENT DATE: 20170712
